FAERS Safety Report 6827275-3 (Version None)
Quarter: 2010Q3

REPORT INFORMATION
  Report Type: 
  Country: None (occurrence: None)
  Receive Date: 20100709
  Receipt Date: 20100628
  Transmission Date: 20110219
  Serious: Yes (Hospitalization)
  Sender: FDA-Public Use
  Company Number: GB-WATSON-2010-08960

PATIENT
  Age: 4 Year
  Sex: Male
  Weight: 15 kg

DRUGS (6)
  1. CLONIDINE [Suspect]
     Indication: EPIDURAL ANAESTHESIA
     Dosage: 15 UG, UNKNOWN
     Route: 008
  2. ATRACURIUM BESYLATE [Suspect]
     Indication: ENDOTRACHEAL INTUBATION
     Dosage: 0.5 MG/KG, UNK
  3. LEVOBUPIVACAINE [Suspect]
     Indication: EPIDURAL ANAESTHESIA
     Dosage: 15 ML OF 0.25%
     Route: 008
  4. ACETAMINOPHEN [Suspect]
     Indication: MAINTENANCE OF ANAESTHESIA
     Dosage: 15 MG/KG, UNK
     Route: 042
  5. PROPOFOL [Suspect]
     Indication: INDUCTION OF ANAESTHESIA
     Dosage: 4 MG/KG, UNK
  6. SEVOFLURANE [Suspect]
     Indication: MAINTENANCE OF ANAESTHESIA
     Dosage: UNK
     Route: 055

REACTIONS (1)
  - PENILE VASCULAR DISORDER [None]
